FAERS Safety Report 17899837 (Version 1)
Quarter: 2020Q2

REPORT INFORMATION
  Report Type: Spontaneous
  Country: US (occurrence: US)
  Receive Date: 20200616
  Receipt Date: 20200616
  Transmission Date: 20200714
  Serious: No
  Sender: FDA-Public Use
  Company Number: US-COVIS PHARMA B.V.-2020COV00128

PATIENT
  Sex: Male

DRUGS (2)
  1. NEXIUM [Suspect]
     Active Substance: ESOMEPRAZOLE MAGNESIUM
     Indication: MULTIPLE ENDOCRINE NEOPLASIA
     Dosage: UNK
     Route: 048
  2. OMEPRAZOLE MAGNESIUM. [Suspect]
     Active Substance: OMEPRAZOLE MAGNESIUM
     Indication: MULTIPLE ENDOCRINE NEOPLASIA TYPE 1
     Dosage: 40 MG, 1X/DAY
     Route: 048

REACTIONS (4)
  - Discomfort [Unknown]
  - Adverse drug reaction [Unknown]
  - Diarrhoea [Unknown]
  - Pain [Unknown]
